FAERS Safety Report 18616444 (Version 3)
Quarter: 2021Q1

REPORT INFORMATION
  Report Type: Spontaneous
  Country: US (occurrence: US)
  Receive Date: 20201215
  Receipt Date: 20210324
  Transmission Date: 20210419
  Serious: Yes (Hospitalization)
  Sender: FDA-Public Use
  Company Number: US-GLOBAL BLOOD THERAPEUTICS INC-US-GBT-20-03353

PATIENT
  Age: 38 Year
  Sex: Female

DRUGS (2)
  1. OXBRYTA [Suspect]
     Active Substance: VOXELOTOR
     Indication: SICKLE CELL DISEASE
     Route: 048
     Dates: start: 20200924
  2. OXBRYTA [Suspect]
     Active Substance: VOXELOTOR
     Route: 048

REACTIONS (7)
  - Product dose omission issue [Unknown]
  - Fatigue [Unknown]
  - Headache [Unknown]
  - Asthenia [Unknown]
  - Off label use [Unknown]
  - Sickle cell anaemia with crisis [Recovered/Resolved]
  - Pain [Unknown]

NARRATIVE: CASE EVENT DATE: 20201001
